FAERS Safety Report 4372867-7 (Version None)
Quarter: 2004Q2

REPORT INFORMATION
  Report Type: 
  Country: None (occurrence: None)
  Receive Date: 20040603
  Receipt Date: 20040517
  Transmission Date: 20050107
  Serious: Yes (Hospitalization, Other)
  Sender: FDA-Public Use
  Company Number: USA040567736

PATIENT
  Age: 72 Year
  Sex: Female

DRUGS (11)
  1. EVISTA [Suspect]
     Indication: BONE DISORDER
     Dates: start: 19950101, end: 20040516
  2. EVISTA [Suspect]
     Indication: FRACTURE
     Dates: start: 19950101, end: 20040516
  3. EVISTA [Suspect]
     Indication: OSTEOPOROSIS
     Dates: start: 19950101, end: 20040516
  4. EVISTA [Suspect]
     Indication: PROPHYLAXIS
     Dates: start: 19950101, end: 20040516
  5. MIACALCIN [Concomitant]
  6. ZOLOFT [Concomitant]
  7. VIOXX [Concomitant]
  8. CORTICOSTEROID NOS [Concomitant]
  9. OXYCODONE [Concomitant]
  10. VICODIN [Concomitant]
  11. TAMOXIFEN CITRATE [Concomitant]

REACTIONS (6)
  - ABDOMINAL DISTENSION [None]
  - MOBILITY DECREASED [None]
  - OSTEOPOROSIS [None]
  - POST PROCEDURAL COMPLICATION [None]
  - SPINAL COMPRESSION FRACTURE [None]
  - THROMBOSIS [None]
